FAERS Safety Report 7111258-2 (Version None)
Quarter: 2010Q4

REPORT INFORMATION
  Report Type: 
  Country: None (occurrence: None)
  Receive Date: 20101118
  Receipt Date: 20101110
  Transmission Date: 20110411
  Serious: Yes (Other)
  Sender: FDA-Public Use
  Company Number: JP-PFIZER INC-2010146442

PATIENT
  Age: 11 Year
  Sex: Male

DRUGS (5)
  1. METHYLPREDNISOLONE SODIUM SUCCINATE [Suspect]
     Dosage: 0.08 MG/KG, ON ALTERNATE DAYS
  2. CICLOSPORIN [Concomitant]
  3. TACROLIMUS [Concomitant]
  4. MYCOPHENOLATE MOFETIL [Concomitant]
  5. BASILIXIMAB [Concomitant]

REACTIONS (1)
  - FAILURE TO THRIVE [None]
